FAERS Safety Report 14155245 (Version 3)
Quarter: 2017Q4

REPORT INFORMATION
  Report Type: Spontaneous
  Country: HK (occurrence: HK)
  Receive Date: 20171103
  Receipt Date: 20171210
  Transmission Date: 20180321
  Serious: Yes (Death, Other)
  Sender: FDA-Public Use
  Company Number: HK-AMGEN-HKGSP2017165447

PATIENT
  Sex: Male

DRUGS (1)
  1. XGEVA [Suspect]
     Active Substance: DENOSUMAB
     Indication: PRODUCT USED FOR UNKNOWN INDICATION
     Dosage: 70 MG/ML,(1.7 ML) UNK
     Route: 065

REACTIONS (3)
  - Dental care [Unknown]
  - Death [Fatal]
  - Tooth extraction [Unknown]
